FAERS Safety Report 12774421 (Version 2)
Quarter: 2016Q4

REPORT INFORMATION
  Report Type: Spontaneous
  Country: US (occurrence: US)
  Receive Date: 20160923
  Receipt Date: 20161018
  Transmission Date: 20170207
  Serious: Yes (Other)
  Sender: FDA-Public Use
  Company Number: US-009507513-1609USA009639

PATIENT
  Age: 74 Year
  Sex: Female

DRUGS (4)
  1. THALIDOMIDE [Suspect]
     Active Substance: THALIDOMIDE
     Dosage: 100 MG, NIGHTLY
     Dates: start: 2012
  2. DEXAMETHASONE. [Suspect]
     Active Substance: DEXAMETHASONE
     Indication: CHEMOTHERAPY
     Dosage: 40 MG PULSE
     Dates: start: 2006
  3. THALIDOMIDE [Suspect]
     Active Substance: THALIDOMIDE
     Dosage: 50 MG, NIGHTLY
     Dates: start: 2012, end: 2012
  4. THALIDOMIDE [Suspect]
     Active Substance: THALIDOMIDE
     Indication: CHEMOTHERAPY
     Dosage: 100 MG DAILY
     Dates: start: 2006, end: 2006

REACTIONS (2)
  - Hepatitis C [Recovered/Resolved]
  - Alanine aminotransferase decreased [Recovered/Resolved]
